FAERS Safety Report 9773142 (Version 1)
Quarter: 2013Q4

REPORT INFORMATION
  Report Type: Spontaneous
  Country: US (occurrence: None)
  Receive Date: 20131217
  Receipt Date: 20131217
  Transmission Date: 20140711
  Serious: Yes (Hospitalization)
  Sender: FDA-Public Use
  Company Number: 1989373

PATIENT
  Age: 14 Year
  Sex: Female

DRUGS (3)
  1. LIPOSYN [Suspect]
     Indication: OVERDOSE
     Dosage: 0.25 ML/KG/MIN, INTRAVENOUS
     Route: 042
  2. EPINEPHRINE [Concomitant]
  3. MIDAZOLAM [Concomitant]

REACTIONS (4)
  - Hypertriglyceridaemia [None]
  - Hyperlipidaemia [None]
  - Pancreatitis [None]
  - Toxicity to various agents [None]
